FAERS Safety Report 6073226-1 (Version None)
Quarter: 2009Q1

REPORT INFORMATION
  Report Type: 
  Country: None (occurrence: None)
  Receive Date: 20090211
  Receipt Date: 20081110
  Transmission Date: 20090719
  Serious: No
  Sender: FDA-Public Use
  Company Number: A0754789A

PATIENT
  Age: 68 Year
  Sex: Female

DRUGS (5)
  1. ALTABAX [Suspect]
     Indication: SKIN INFECTION
     Dosage: 1APP SINGLE DOSE
     Route: 061
     Dates: start: 20081101, end: 20081102
  2. LIPITOR [Concomitant]
  3. BENICAR [Concomitant]
  4. TOPROL-XL [Concomitant]
  5. GLUCOPHAGE [Concomitant]

REACTIONS (3)
  - APPLICATION SITE ERYTHEMA [None]
  - APPLICATION SITE IRRITATION [None]
  - APPLICATION SITE PAIN [None]
